FAERS Safety Report 13721732 (Version 2)
Quarter: 2017Q3

REPORT INFORMATION
  Report Type: Spontaneous
  Country: US (occurrence: US)
  Receive Date: 20170706
  Receipt Date: 20170829
  Transmission Date: 20171127
  Serious: No
  Sender: FDA-Public Use
  Company Number: US-PFIZER INC-2017234093

PATIENT
  Age: 67 Year
  Sex: Female
  Weight: 73.9 kg

DRUGS (21)
  1. NOVOLIN [Concomitant]
     Active Substance: INSULIN HUMAN
     Indication: DIABETES MELLITUS
     Dosage: 26 IU, 2X/DAY (12 UNITS AM AND 14 IN PM)
     Dates: start: 2015
  2. XGEVA [Concomitant]
     Active Substance: DENOSUMAB
     Indication: BONE DISORDER
     Dosage: UNK
     Dates: end: 201704
  3. IBRANCE [Suspect]
     Active Substance: PALBOCICLIB
     Indication: BREAST CANCER METASTATIC
     Dosage: 125 MG, CYCLIC, (TAKE ONE A DAY ? 21 DAYS OFF 7)
  4. FENTANYL. [Concomitant]
     Active Substance: FENTANYL
     Indication: PAIN
     Dosage: 100 MG, UNK, (EVERY 3 DAYS)
     Dates: start: 2014
  5. CYCLOBENZAPRINE HYDROCHLORIDE. [Concomitant]
     Active Substance: CYCLOBENZAPRINE HYDROCHLORIDE
     Indication: MUSCLE RELAXANT THERAPY
     Dosage: 10 MG, UNK, (TAKE UP TO 3 BUT USUALLY ONLY TAKE ONE)
     Dates: start: 2005
  6. IBRANCE [Suspect]
     Active Substance: PALBOCICLIB
     Dosage: 125 MG, 1X/DAY, (EVENING AT 6PM)
     Route: 048
     Dates: start: 20170620, end: 20170625
  7. OMEPRAZOLE. [Concomitant]
     Active Substance: OMEPRAZOLE
     Indication: GASTROOESOPHAGEAL REFLUX DISEASE
     Dosage: 40 MG, 2X/DAY
     Dates: start: 2010
  8. NITROSTAT [Concomitant]
     Active Substance: NITROGLYCERIN
     Indication: ANGINA PECTORIS
     Dosage: 0.4 MG, AS NEEDED
     Route: 060
  9. FASLODEX [Concomitant]
     Active Substance: FULVESTRANT
     Dosage: 2 DF (RECEIVES 2 INJECTIONS AT A TIME, ONE IN EACH HIP)
     Dates: start: 201705
  10. ZOFRAN [Concomitant]
     Active Substance: ONDANSETRON HYDROCHLORIDE
     Indication: ABDOMINAL DISCOMFORT
     Dosage: 4 MG, UNK
     Dates: start: 2014
  11. OMEPRAZOLE. [Concomitant]
     Active Substance: OMEPRAZOLE
     Indication: HIATUS HERNIA
     Dosage: 20 MG, UNK
     Dates: start: 2010
  12. POTASSIUM CHLORIDE. [Concomitant]
     Active Substance: POTASSIUM CHLORIDE
     Indication: SWELLING
     Dosage: 10 MEQ, 2X/DAY
     Dates: start: 2000
  13. ACICLOVIR [Concomitant]
     Active Substance: ACYCLOVIR
     Indication: PROPHYLAXIS
     Dosage: 200 MG, 1X/DAY
     Dates: start: 2007
  14. FASLODEX [Concomitant]
     Active Substance: FULVESTRANT
     Indication: NEOPLASM MALIGNANT
     Dosage: UNK, CYCLIC (INITIAL DOSE, THEN RECEIVED A DOSE 2 WEEKS LATER, THEN AGAIN 2 WEEKS LATER)
     Dates: start: 201705
  15. METOPROLOL TARTRATE. [Concomitant]
     Active Substance: METOPROLOL TARTRATE
     Indication: HEART RATE
     Dosage: 25 MG, UNK
     Dates: start: 2014
  16. METFORMIN [Concomitant]
     Active Substance: METFORMIN HYDROCHLORIDE
     Indication: DIABETES MELLITUS
     Dosage: 500 MG, 4X/DAY
  17. LEVOTHYROXIN [Concomitant]
     Active Substance: LEVOTHYROXINE
     Indication: HYPOTHYROIDISM
     Dosage: 100 MG, DAILY
     Dates: start: 1997
  18. FASLODEX [Concomitant]
     Active Substance: FULVESTRANT
     Dosage: UNK, MONTHLY
  19. HYDROCODONE [Concomitant]
     Active Substance: HYDROCODONE
     Indication: PAIN
     Dosage: UNK, (10/325MG)
     Dates: start: 2014
  20. FUROSEMIDE. [Concomitant]
     Active Substance: FUROSEMIDE
     Indication: SWELLING
     Dosage: 20 MG, 2X/DAY
     Dates: start: 2000
  21. ARIMIDEX [Concomitant]
     Active Substance: ANASTROZOLE
     Dosage: UNK UNK, DAILY

REACTIONS (2)
  - Neoplasm progression [Unknown]
  - Nausea [Unknown]

NARRATIVE: CASE EVENT DATE: 20170623
